FAERS Safety Report 11105171 (Version 1)
Quarter: 2015Q2

REPORT INFORMATION
  Report Type: Spontaneous
  Country: US (occurrence: US)
  Receive Date: 20150511
  Receipt Date: 20150511
  Transmission Date: 20150821
  Serious: Yes (Other)
  Sender: FDA-Public Use
  Company Number: US-ALLERGAN-1508750US

PATIENT
  Age: 42 Year
  Sex: Male

DRUGS (1)
  1. BOTOX [Suspect]
     Active Substance: ONABOTULINUMTOXINA
     Indication: ARTHRALGIA
     Dosage: UNK, SINGLE
     Route: 030

REACTIONS (3)
  - Neuroma [Recovered/Resolved]
  - Post-traumatic pain [Unknown]
  - Off label use [Unknown]
